FAERS Safety Report 13914170 (Version 2)
Quarter: 2018Q1

REPORT INFORMATION
  Report Type: Spontaneous
  Country: US (occurrence: US)
  Receive Date: 20170829
  Receipt Date: 20180112
  Transmission Date: 20180508
  Serious: Yes (Hospitalization)
  Sender: FDA-Public Use
  Company Number: US-PFIZER INC-2017370651

PATIENT
  Age: 70 Year
  Sex: Female

DRUGS (4)
  1. PACLITAXEL. [Suspect]
     Active Substance: PACLITAXEL
     Indication: PROPHYLAXIS
     Dosage: 290 MG, UNK (290 MG IN EVERY 3 WEEKS X 6)
     Route: 042
     Dates: start: 20170811, end: 20170811
  2. PACLITAXEL. [Suspect]
     Active Substance: PACLITAXEL
     Indication: FALLOPIAN TUBE CANCER
     Dosage: UNK, TAKES 2 HOURS TO INFUSE
     Route: 042
     Dates: start: 201705, end: 20170811
  3. CARBOPLATIN. [Concomitant]
     Active Substance: CARBOPLATIN
     Dosage: UNK
     Dates: start: 201705, end: 20170811
  4. BENADRYL [Concomitant]
     Active Substance: DIPHENHYDRAMINE HYDROCHLORIDE
     Dosage: UNK

REACTIONS (9)
  - Hypoaesthesia [Unknown]
  - Soft tissue atrophy [Not Recovered/Not Resolved]
  - Injection site extravasation [Not Recovered/Not Resolved]
  - Pain in extremity [Not Recovered/Not Resolved]
  - Skin sensitisation [Not Recovered/Not Resolved]
  - Neuropathy peripheral [Unknown]
  - Alopecia [Unknown]
  - Skin exfoliation [Unknown]
  - Peripheral swelling [Recovering/Resolving]

NARRATIVE: CASE EVENT DATE: 2017
